FAERS Safety Report 9659890 (Version 5)
Quarter: 2014Q2

REPORT INFORMATION
  Report Type: Spontaneous
  Country: GB (occurrence: GB)
  Receive Date: 20131031
  Receipt Date: 20140610
  Transmission Date: 20141212
  Serious: Yes (Death, Other)
  Sender: FDA-Public Use
  Company Number: GB-SA-2013SA108014

PATIENT
  Age: 57 Year
  Sex: Male

DRUGS (3)
  1. RIFATER [Suspect]
     Indication: TUBERCULOSIS
     Route: 065
  2. AFINITOR [Interacting]
     Indication: RENAL CELL CARCINOMA
     Dosage: 10 MG, DAILY
     Route: 048
     Dates: start: 201206, end: 201301
  3. AFINITOR [Interacting]
     Indication: RENAL CELL CARCINOMA
     Dosage: 20 MG, DAILY
     Route: 048
     Dates: start: 201301, end: 201302

REACTIONS (4)
  - Death [Fatal]
  - Malignant neoplasm progression [Not Recovered/Not Resolved]
  - Tuberculosis [Recovered/Resolved with Sequelae]
  - Drug interaction [Unknown]
